FAERS Safety Report 24468314 (Version 1)
Quarter: 2024Q4

REPORT INFORMATION
  Report Type: Spontaneous
  Country: US (occurrence: US)
  Receive Date: 20241018
  Receipt Date: 20241018
  Transmission Date: 20250114
  Serious: Yes (Other)
  Sender: RANBAXY
  Company Number: US-SUN PHARMACEUTICAL INDUSTRIES LTD-2024R1-474146

PATIENT
  Age: 65 Year
  Sex: Male

DRUGS (7)
  1. CLOBETASOL [Suspect]
     Active Substance: CLOBETASOL
     Indication: Dermatophytosis
     Dosage: UNK
     Route: 065
  2. CLOTRIMAZOLE [Suspect]
     Active Substance: CLOTRIMAZOLE
     Indication: Dermatophytosis
     Dosage: UNK
     Route: 065
  3. FLUCONAZOLE [Suspect]
     Active Substance: FLUCONAZOLE
     Indication: Dermatophytosis
     Dosage: UNK
     Route: 065
  4. GRISEOFULVIN [Suspect]
     Active Substance: GRISEOFULVIN
     Indication: Dermatophytosis
     Dosage: UNK
     Route: 048
  5. TERBINAFINE [Suspect]
     Active Substance: TERBINAFINE\TERBINAFINE HYDROCHLORIDE
     Indication: Dermatophytosis
     Dosage: UNK
     Route: 065
  6. PREDNISONE [Suspect]
     Active Substance: PREDNISONE
     Indication: Dermatophytosis
     Dosage: UNK
     Route: 065
  7. FLUOCINONIDE [Suspect]
     Active Substance: FLUOCINONIDE
     Indication: Dermatophytosis
     Dosage: UNK
     Route: 065

REACTIONS (2)
  - Drug ineffective [Unknown]
  - Drug resistance [Unknown]
